FAERS Safety Report 4945621-2 (Version None)
Quarter: 2006Q1

REPORT INFORMATION
  Report Type: 
  Country: None (occurrence: None)
  Receive Date: 20060117
  Receipt Date: 20050822
  Transmission Date: 20060701
  Serious: Yes (Hospitalization)
  Sender: FDA-Public Use
  Company Number: A03200502633

PATIENT
  Age: 79 Year
  Sex: Female

DRUGS (6)
  1. PLAVIX [Suspect]
     Indication: ANGIOPLASTY
     Dosage: 75 MG BID ORAL
     Route: 048
  2. PLAVIX [Suspect]
     Indication: STENT PLACEMENT
     Dosage: 75 MG BID ORAL
     Route: 048
  3. PLAVIX [Concomitant]
     Indication: ANGIOPLASTY
     Dosage: 300 MG ONCE - ORAL
     Route: 048
  4. PLAVIX [Concomitant]
     Indication: STENT PLACEMENT
     Dosage: 300 MG ONCE - ORAL
     Route: 048
  5. EPTIFIBATIDE [Concomitant]
  6. HEPARIN [Concomitant]

REACTIONS (3)
  - EPISTAXIS [None]
  - EYE HAEMORRHAGE [None]
  - HAEMORRHAGE [None]
